FAERS Safety Report 5924553-7 (Version None)
Quarter: 2008Q4

REPORT INFORMATION
  Report Type: 
  Country: None (occurrence: None)
  Receive Date: 20081020
  Receipt Date: 20081008
  Transmission Date: 20090506
  Serious: Yes (Hospitalization)
  Sender: FDA-Public Use
  Company Number: BE-PFIZER INC-2008085158

PATIENT
  Age: 48 Year
  Sex: Male

DRUGS (9)
  1. ZYVOXID TABLET [Suspect]
     Indication: STAPHYLOCOCCAL INFECTION
     Route: 048
     Dates: start: 20080821, end: 20080826
  2. GLEEVEC [Concomitant]
  3. LYRICA [Concomitant]
  4. PALLADONE [Concomitant]
  5. REDOMEX [Concomitant]
  6. EPOETIN BETA [Concomitant]
  7. OMEPRAZOLE [Concomitant]
  8. ALLOPURINOL [Concomitant]
  9. SULPIRIDE [Concomitant]

REACTIONS (1)
  - HEPATITIS TOXIC [None]
